FAERS Safety Report 23993050 (Version 1)
Quarter: 2024Q2

REPORT INFORMATION
  Report Type: Spontaneous
  Country: US (occurrence: US)
  Receive Date: 20240620
  Receipt Date: 20240620
  Transmission Date: 20240716
  Serious: Yes (Death, Other)
  Sender: FDA-Public Use
  Company Number: US-AMGEN-USASP2024116866

PATIENT

DRUGS (2)
  1. PREDNISONE [Suspect]
     Active Substance: PREDNISONE
     Indication: Systemic scleroderma
     Dosage: UNK
     Route: 065
  2. RITUXIMAB [Suspect]
     Active Substance: RITUXIMAB
     Indication: Systemic scleroderma
     Dosage: UNK
     Route: 065

REACTIONS (14)
  - Death [Fatal]
  - Pulmonary hypertension [Unknown]
  - Pericardial effusion [Unknown]
  - Aortic valve incompetence [Unknown]
  - Aortic stenosis [Unknown]
  - Mitral valve stenosis [Unknown]
  - Tricuspid valve incompetence [Unknown]
  - Pulmonary valve incompetence [Unknown]
  - Right ventricular dysfunction [Unknown]
  - Left ventricular dysfunction [Unknown]
  - Right ventricular dilatation [Unknown]
  - Ventricular hypertrophy [Unknown]
  - Right atrial dilatation [Unknown]
  - Off label use [Unknown]
